FAERS Safety Report 6576597-2 (Version None)
Quarter: 2010Q1

REPORT INFORMATION
  Report Type: 
  Country: None (occurrence: None)
  Receive Date: 20100210
  Receipt Date: 20100201
  Transmission Date: 20100710
  Serious: Yes (Other)
  Sender: FDA-Public Use
  Company Number: PHHY2008DE30927

PATIENT
  Sex: Female

DRUGS (2)
  1. RITALIN [Suspect]
     Indication: ATTENTION DEFICIT/HYPERACTIVITY DISORDER
     Dosage: 20 MG DAILY
     Route: 048
     Dates: start: 20090801
  2. RITALIN [Suspect]
     Dosage: 10 MG /DAILY
     Route: 048

REACTIONS (5)
  - ABORTION INDUCED [None]
  - DRUG EXPOSURE DURING PREGNANCY [None]
  - MENTAL DISORDER [None]
  - PREGNANCY [None]
  - PSYCHIATRIC DECOMPENSATION [None]
